FAERS Safety Report 24253795 (Version 1)
Quarter: 2024Q3

REPORT INFORMATION
  Report Type: Spontaneous
  Country: US (occurrence: US)
  Receive Date: 20240827
  Receipt Date: 20240827
  Transmission Date: 20241016
  Serious: No
  Sender: AVKARE
  Company Number: US-AvKARE-2160907

PATIENT
  Age: 59 Year
  Sex: Male

DRUGS (1)
  1. CAPSAICIN [Suspect]
     Active Substance: CAPSAICIN
     Route: 061

REACTIONS (1)
  - Gingival discomfort [Recovered/Resolved]

NARRATIVE: CASE EVENT DATE: 20240823
